FAERS Safety Report 4333067-X (Version None)
Quarter: 2004Q1

REPORT INFORMATION
  Report Type: 
  Country: None (occurrence: None)
  Receive Date: 20040330
  Receipt Date: 20040318
  Transmission Date: 20041129
  Serious: No
  Sender: FDA-Public Use
  Company Number: 04P-163-0254165-00

PATIENT
  Age: 20 Year
  Sex: Female
  Weight: 50.7 kg

DRUGS (3)
  1. DEPAKENE [Suspect]
     Indication: CONVULSION
     Dosage: 3500 MG
  2. OLANZAPINE [Concomitant]
  3. PHENOBARBITAL TAB [Concomitant]

REACTIONS (3)
  - HYPOALBUMINAEMIA [None]
  - HYPONATRAEMIA [None]
  - OEDEMA PERIPHERAL [None]
